FAERS Safety Report 4622926-6 (Version None)
Quarter: 2005Q1

REPORT INFORMATION
  Report Type: 
  Country: None (occurrence: None)
  Receive Date: 20050329
  Receipt Date: 20031125
  Transmission Date: 20050727
  Serious: Yes (Death)
  Sender: FDA-Public Use
  Company Number: 10087

PATIENT
  Age: 58 Year
  Sex: Male

DRUGS (4)
  1. METHOTREXATE [Suspect]
     Dosage: 25 MG WEEKLY
     Dates: start: 19971211, end: 20030701
  2. ETANERCEPT [Concomitant]
     Dosage: 7.143 MG
     Dates: start: 20020114, end: 20030708
  3. PREDNISONE TAB [Suspect]
     Dosage: 10 MG
     Dates: start: 20000119, end: 20030822
  4. DICLOFENAC SODIUM [Concomitant]

REACTIONS (6)
  - ACUTE RESPIRATORY DISTRESS SYNDROME [None]
  - BACTERIAL SEPSIS [None]
  - COLLAPSE OF LUNG [None]
  - EMPYEMA [None]
  - IMPAIRED HEALING [None]
  - PNEUMONIA ASPERGILLUS [None]
